FAERS Safety Report 7113335-9 (Version None)
Quarter: 2010Q4

REPORT INFORMATION
  Report Type: 
  Country: None (occurrence: None)
  Receive Date: 20101119
  Receipt Date: 20101111
  Transmission Date: 20110411
  Serious: Yes (Life-Threatening, Hospitalization)
  Sender: FDA-Public Use
  Company Number: SE-NAPPMUNDI-GBR-2010-0007323

PATIENT
  Sex: Female
  Weight: 65.1 kg

DRUGS (8)
  1. OXYCONTIN [Suspect]
     Indication: PRODUCT USED FOR UNKNOWN INDICATION
  2. SOMATROPIN [Suspect]
     Indication: HYPOPITUITARISM
     Dosage: 0.4 MG, UNK
     Route: 058
     Dates: start: 20090414
  3. LEVOTHYROXINE SODIUM [Concomitant]
     Dosage: UNK
     Dates: start: 20070110
  4. HYDROCORTISONE [Concomitant]
     Dosage: UNK
     Dates: start: 20070110
  5. ENALAPRIL MALEATE [Concomitant]
     Dosage: UNK
     Dates: start: 20070110
  6. SALURES-K [Concomitant]
     Dosage: UNK
     Dates: start: 20031006
  7. SELOKENZOC [Concomitant]
     Dosage: UNK
     Dates: start: 20030425
  8. MEDROXYPROGESTERONE [Concomitant]
     Dosage: UNK
     Dates: start: 20010715

REACTIONS (2)
  - ACUTE MYOCARDIAL INFARCTION [None]
  - HYPONATRAEMIA [None]
